FAERS Safety Report 20495399 (Version 1)
Quarter: 2022Q1

REPORT INFORMATION
  Report Type: Spontaneous
  Country: GB (occurrence: GB)
  Receive Date: 20220221
  Receipt Date: 20220221
  Transmission Date: 20220424
  Serious: Yes (Hospitalization)
  Sender: FDA-Public Use
  Company Number: None

PATIENT
  Age: 18 Year
  Sex: Female

DRUGS (6)
  1. DOXYCYCLINE [Suspect]
     Active Substance: DOXYCYCLINE
     Indication: Lower respiratory tract infection
     Dosage: 100 MILLIGRAM, QD(200MG STAT THEN 100MG DAILY)
     Route: 048
     Dates: start: 20211007, end: 20211012
  2. DOXYCYCLINE [Suspect]
     Active Substance: DOXYCYCLINE
     Indication: Lower respiratory tract infection
     Dosage: 100 MILLIGRAM, QD(200MG STAT THEN 100MG DAILY)
     Route: 048
     Dates: start: 20211006, end: 20211006
  3. EPINEPHRINE [Concomitant]
     Active Substance: EPINEPHRINE
     Indication: Food allergy
     Dosage: UNK
     Route: 030
  4. PFIZER-BIONTECH COVID-19 VACCINE [Concomitant]
     Active Substance: TOZINAMERAN
     Dosage: UNK (RECEIVED BOTH DOSES 25/6/21 AND 29/08/21)
     Route: 030
     Dates: start: 20210626, end: 20210626
  5. PFIZER-BIONTECH COVID-19 VACCINE [Concomitant]
     Active Substance: TOZINAMERAN
     Dosage: UNK (RECEIVED BOTH DOSES 25/6/21 AND 29/08/21)
     Route: 030
     Dates: start: 20210829, end: 20210829
  6. LANSOPRAZOLE [Concomitant]
     Active Substance: LANSOPRAZOLE
     Dosage: 15 MILLIGRAM, QD
     Route: 048
     Dates: start: 20211006

REACTIONS (1)
  - Oesophageal perforation [Recovering/Resolving]
